FAERS Safety Report 6158819-5 (Version None)
Quarter: 2009Q2

REPORT INFORMATION
  Report Type: 
  Country: None (occurrence: None)
  Receive Date: 20090417
  Receipt Date: 20090408
  Transmission Date: 20091009
  Serious: Yes (Hospitalization, Other)
  Sender: FDA-Public Use
  Company Number: US-ABBOTT-09P-163-0567083-00

PATIENT
  Age: 2 Year
  Sex: Female
  Weight: 1.789 kg

DRUGS (1)
  1. DEPAKOTE [Suspect]
     Indication: DRUG EXPOSURE DURING PREGNANCY
     Route: 064

REACTIONS (8)
  - CONGENITAL HAND MALFORMATION [None]
  - DRUG EXPOSURE DURING PREGNANCY [None]
  - HAND DEFORMITY [None]
  - HYDROCEPHALUS [None]
  - KIDNEY MALFORMATION [None]
  - RESPIRATORY DEPRESSION [None]
  - SPINA BIFIDA [None]
  - VENTRICULAR SEPTAL DEFECT [None]
